FAERS Safety Report 24235723 (Version 2)
Quarter: 2024Q3

REPORT INFORMATION
  Report Type: Spontaneous
  Country: US (occurrence: None)
  Receive Date: 20240822
  Receipt Date: 20240906
  Transmission Date: 20241017
  Serious: No
  Sender: ENCUBE ETHICALS
  Company Number: US-Encube-001273

PATIENT
  Age: 89 Year
  Sex: Female

DRUGS (1)
  1. CICLOPIROX [Suspect]
     Active Substance: CICLOPIROX
     Indication: Onychomycosis
     Dosage: SOLUTION

REACTIONS (4)
  - Product physical consistency issue [Unknown]
  - Inappropriate schedule of product administration [Unknown]
  - Drug ineffective [Unknown]
  - Poor quality product administered [Unknown]
